FAERS Safety Report 16786669 (Version 1)
Quarter: 2019Q3

REPORT INFORMATION
  Report Type: Spontaneous
  Country: US (occurrence: US)
  Receive Date: 20190909
  Receipt Date: 20190909
  Transmission Date: 20191005
  Serious: No
  Sender: FDA-Public Use
  Company Number: US-OSMOTICA_PHARMACEUTICAL_US_LLC-POI0573201900308

PATIENT
  Age: 74 Year
  Sex: Female
  Weight: 83.54 kg

DRUGS (3)
  1. OSMOLEX ER [Suspect]
     Active Substance: AMANTADINE
     Indication: TREMOR
  2. CARBIDOPA AND LEVODOPA [Concomitant]
     Active Substance: CARBIDOPA\LEVODOPA
     Indication: PRODUCT USED FOR UNKNOWN INDICATION
     Dosage: 25 MG WITH 100 MG
  3. OSMOLEX ER [Suspect]
     Active Substance: AMANTADINE
     Indication: VASCULAR PARKINSONISM
     Dates: start: 20190722, end: 20190729

REACTIONS (3)
  - Insomnia [Recovering/Resolving]
  - Asthenia [Recovering/Resolving]
  - Restlessness [Unknown]

NARRATIVE: CASE EVENT DATE: 20190726
